FAERS Safety Report 13937103 (Version 2)
Quarter: 2017Q3

REPORT INFORMATION
  Report Type: Spontaneous
  Country: AU (occurrence: AU)
  Receive Date: 20170905
  Receipt Date: 20170911
  Transmission Date: 20171127
  Serious: No
  Sender: FDA-Public Use
  Company Number: AU-PFIZER INC-2017374001

PATIENT
  Age: 62 Year
  Sex: Male

DRUGS (4)
  1. VIAGRA [Suspect]
     Active Substance: SILDENAFIL CITRATE
     Indication: SEXUAL DYSFUNCTION
     Dosage: 25 MG, (QUATERED FROM 100 MG)
  2. CORTISOL [Concomitant]
     Active Substance: HYDROCORTISONE
     Dosage: UNK
  3. XALATAN [Concomitant]
     Active Substance: LATANOPROST
     Dosage: UNK
  4. COVERSYL /00790703/ [Concomitant]
     Active Substance: PERINDOPRIL
     Indication: BLOOD PRESSURE ABNORMAL
     Dosage: UNK

REACTIONS (2)
  - Hypotension [Not Recovered/Not Resolved]
  - Flushing [Recovered/Resolved]
